FAERS Safety Report 5898542-5 (Version None)
Quarter: 2008Q3

REPORT INFORMATION
  Report Type: 
  Country: None (occurrence: None)
  Receive Date: 20080925
  Receipt Date: 20080111
  Transmission Date: 20090109
  Serious: No
  Sender: FDA-Public Use
  Company Number: A0702751A

PATIENT
  Age: 76 Year
  Sex: Female

DRUGS (5)
  1. WELLBUTRIN XL [Suspect]
     Indication: DEPRESSION
     Dosage: 300MG PER DAY
     Route: 048
     Dates: start: 20071220
  2. PROZAC [Concomitant]
  3. NEXIUM [Concomitant]
  4. CALCIUM CITRATE [Concomitant]
  5. XANAX [Concomitant]

REACTIONS (1)
  - DEPRESSION [None]
